FAERS Safety Report 16130293 (Version 1)
Quarter: 2019Q1

REPORT INFORMATION
  Report Type: Spontaneous
  Country: US (occurrence: US)
  Receive Date: 20190328
  Receipt Date: 20190328
  Transmission Date: 20190418
  Serious: No
  Sender: FDA-Public Use
  Company Number: US-MMM-P8ZBKGC2

PATIENT
  Sex: Male

DRUGS (1)
  1. SUBLOCADE [Suspect]
     Active Substance: BUPRENORPHINE
     Indication: DRUG DEPENDENCE
     Dosage: 300 MG,ONCE MONTHLY
     Route: 065
     Dates: start: 20181215

REACTIONS (2)
  - Drug effect incomplete [Unknown]
  - Feeling jittery [Unknown]
